FAERS Safety Report 19278665 (Version 1)
Quarter: 2021Q2

REPORT INFORMATION
  Report Type: Spontaneous
  Country: US (occurrence: US)
  Receive Date: 20210520
  Receipt Date: 20210520
  Transmission Date: 20210717
  Serious: Yes (Life-Threatening, Disabling)
  Sender: FDA-Public Use
  Company Number: None

PATIENT
  Age: 49 Year
  Sex: Female
  Weight: 83.25 kg

DRUGS (3)
  1. WHOLE FOOD ORGANIC GUMMY VITAMIN [Concomitant]
  2. NP THYROID [Suspect]
     Active Substance: LEVOTHYROXINE\LIOTHYRONINE
     Indication: HYPOTHYROIDISM
     Dosage: ??          QUANTITY:1 TABLET(S);?
     Route: 048
     Dates: start: 20200908, end: 20201204
  3. LEVOTHYROXINE. [Concomitant]
     Active Substance: LEVOTHYROXINE

REACTIONS (5)
  - Asthenia [None]
  - Fatigue [None]
  - Dizziness postural [None]
  - Syncope [None]
  - Depression [None]

NARRATIVE: CASE EVENT DATE: 20200908
